FAERS Safety Report 4778056-6 (Version None)
Quarter: 2005Q3

REPORT INFORMATION
  Report Type: 
  Country: None (occurrence: None)
  Receive Date: 20050921
  Receipt Date: 20050912
  Transmission Date: 20060218
  Serious: Yes (Other)
  Sender: FDA-Public Use
  Company Number: 234248K05USA

PATIENT
  Age: 28 Year
  Sex: Female
  Weight: 139.2543 kg

DRUGS (5)
  1. REBIF [Suspect]
     Indication: MULTIPLE SCLEROSIS
     Dosage: 22 MCG, 3 IN 1 WEEKS, SUBCUTANEOUS; 44 MCG, 3 IN 1 WEEKS, SUBCUTANEOUS
     Route: 058
     Dates: start: 20030620
  2. PROVIGIL [Concomitant]
  3. SINGULAIR [Concomitant]
  4. PREVACID [Concomitant]
  5. LEVOXYL [Concomitant]

REACTIONS (3)
  - BLOOD GLUCOSE INCREASED [None]
  - DIABETES MELLITUS NON-INSULIN-DEPENDENT [None]
  - HEPATIC STEATOSIS [None]
